FAERS Safety Report 4957128-7 (Version None)
Quarter: 2006Q1

REPORT INFORMATION
  Report Type: 
  Country: None (occurrence: None)
  Receive Date: 20060329
  Receipt Date: 20050727
  Transmission Date: 20060701
  Serious: Yes (Hospitalization, Disabling, Other)
  Sender: FDA-Public Use
  Company Number: US-MERCK-0507USA04318

PATIENT
  Age: 54 Year
  Sex: Female
  Weight: 66 kg

DRUGS (26)
  1. VIOXX [Suspect]
     Indication: ARTHRITIS
     Route: 048
     Dates: start: 20021117, end: 20040119
  2. VIOXX [Suspect]
     Route: 048
     Dates: start: 20040301
  3. VIOXX [Suspect]
     Route: 048
  4. VIOXX [Suspect]
     Indication: PAIN
     Route: 048
     Dates: start: 20021117, end: 20040119
  5. VIOXX [Suspect]
     Route: 048
     Dates: start: 20040301
  6. VIOXX [Suspect]
     Route: 048
  7. IMIPRAMINE HYDROCHLORIDE [Concomitant]
     Route: 048
     Dates: end: 20031201
  8. IMIPRAMINE HYDROCHLORIDE [Concomitant]
     Route: 048
  9. ASPIRIN [Concomitant]
     Route: 065
  10. NEXIUM [Concomitant]
     Route: 048
  11. ALTACE [Concomitant]
     Route: 048
  12. AMBIEN [Concomitant]
     Route: 048
  13. LASIX [Concomitant]
     Route: 048
  14. SPIRONOLACTONE [Concomitant]
     Route: 048
  15. COREG [Concomitant]
     Route: 048
  16. COREG [Concomitant]
     Route: 048
  17. PRILOSEC [Concomitant]
     Route: 048
  18. TAMOXIFEN CITRATE [Concomitant]
     Route: 048
  19. MORPHINE [Suspect]
     Route: 065
  20. EVISTA [Suspect]
     Route: 048
     Dates: end: 20031001
  21. EFFEXOR XR [Concomitant]
     Route: 048
  22. COUMADIN [Concomitant]
     Route: 048
  23. DEMADEX [Concomitant]
     Route: 048
  24. DIGOXIN [Concomitant]
     Route: 048
  25. LIPITOR [Concomitant]
     Route: 048
  26. ZETIA [Concomitant]
     Route: 048

REACTIONS (30)
  - ANAEMIA [None]
  - ARTHRALGIA [None]
  - BUNDLE BRANCH BLOCK LEFT [None]
  - CARDIAC DISORDER [None]
  - CARDIAC FAILURE [None]
  - CARDIOVASCULAR DISORDER [None]
  - CARPAL TUNNEL SYNDROME [None]
  - CELLULITIS [None]
  - CONGESTIVE CARDIOMYOPATHY [None]
  - CONSTIPATION [None]
  - DEPRESSION [None]
  - DIZZINESS [None]
  - EMBOLIC STROKE [None]
  - EMOTIONAL DISTRESS [None]
  - GOITRE [None]
  - HAEMATOCHEZIA [None]
  - HOT FLUSH [None]
  - HYPERLIPIDAEMIA [None]
  - HYPERTENSION [None]
  - LIPASE INCREASED [None]
  - MYOCARDIAL INFARCTION [None]
  - NAUSEA [None]
  - RESTLESS LEGS SYNDROME [None]
  - SEPSIS [None]
  - SINUSITIS [None]
  - SYNCOPE [None]
  - TACHYCARDIA [None]
  - TOOTH DISORDER [None]
  - URINARY TRACT INFECTION [None]
  - VOMITING [None]
